FAERS Safety Report 8064002 (Version 2)
Quarter: 2014Q1

REPORT INFORMATION
  Report Type: Spontaneous
  Country: US (occurrence: None)
  Receive Date: 20110711
  Receipt Date: 20140219
  Transmission Date: 20141002
  Serious: Yes (Other)
  Sender: FDA-Public Use
  Company Number: IPC201103-000476

PATIENT
  Sex: 0

DRUGS (4)
  1. METOCLOPRAMIDE HYDROCHLORIDE [Suspect]
     Dosage: ORAL
     Route: 048
     Dates: start: 200405, end: 201004
  2. REGLAN [Suspect]
     Dosage: ORAL
     Route: 048
     Dates: start: 200405, end: 201004
  3. METOCLOPRAMIDE [Suspect]
     Dosage: ORAL
     Route: 048
     Dates: start: 200405, end: 201004
  4. METOCLOPRAMIDE [Suspect]
     Dosage: ORAL
     Route: 048
     Dates: start: 200405, end: 201004

REACTIONS (1)
  - Parkinsonism [None]
